FAERS Safety Report 25018045 (Version 1)
Quarter: 2025Q1

REPORT INFORMATION
  Report Type: Spontaneous
  Country: US (occurrence: None)
  Receive Date: 20250227
  Receipt Date: 20250227
  Transmission Date: 20250409
  Serious: Yes (Disabling)
  Sender: FDA-CTU
  Company Number: None

PATIENT
  Age: 71 Year
  Sex: Female
  Weight: 67.5 kg

DRUGS (4)
  1. CEQUA [Suspect]
     Active Substance: CYCLOSPORINE
     Dosage: FREQUENCY : EVERY 12 HOURS;?
     Route: 047
     Dates: start: 20250226, end: 20250227
  2. INSULIN NOS [Concomitant]
     Active Substance: INSULIN NOS
  3. LEVOTHYROXINE [Concomitant]
     Active Substance: LEVOTHYROXINE
  4. SOLIFENACIN [Concomitant]
     Active Substance: SOLIFENACIN

REACTIONS (4)
  - Eye pruritus [None]
  - Lacrimation increased [None]
  - Eye irritation [None]
  - Periorbital swelling [None]

NARRATIVE: CASE EVENT DATE: 20250227
